FAERS Safety Report 6751568-1 (Version None)
Quarter: 2010Q2

REPORT INFORMATION
  Report Type: 
  Country: None (occurrence: None)
  Receive Date: 20100528
  Receipt Date: 20100519
  Transmission Date: 20101027
  Serious: Yes (Hospitalization)
  Sender: FDA-Public Use
  Company Number: 009145

PATIENT
  Sex: Female
  Weight: 62.9 kg

DRUGS (10)
  1. LEVETIRACETAM [Suspect]
     Indication: EPILEPSY
     Dosage: (1250 MG  BID ORAL), (1500 MG BID ORAL)
     Route: 048
     Dates: start: 20071010, end: 20090114
  2. LEVETIRACETAM [Suspect]
     Indication: EPILEPSY
     Dosage: (1250 MG  BID ORAL), (1500 MG BID ORAL)
     Route: 048
     Dates: start: 20090114
  3. TEGRETOL [Suspect]
     Indication: EPILEPSY
     Dosage: (150 MG BID ORAL), (100 MG BID ORAL)
     Route: 048
     Dates: start: 20090120, end: 20100319
  4. TEGRETOL [Suspect]
     Indication: EPILEPSY
     Dosage: (150 MG BID ORAL), (100 MG BID ORAL)
     Route: 048
     Dates: start: 20100320
  5. GABAPENTINE (GABAPEN) (NOT SPECIFIED) [Suspect]
     Indication: EPILEPSY
     Dosage: (800 MG TID ORAL)
     Route: 048
     Dates: start: 20090603
  6. HIRNAMIN /00038601/ (HIRNAMIN) [Suspect]
     Indication: RESTLESSNESS
     Dosage: (25 MG BID ORAL)
     Route: 048
     Dates: start: 20090407, end: 20100319
  7. EPINASTINE HYDROCHLORIDE [Concomitant]
  8. SENNOSIDE /00571902/ [Concomitant]
  9. SODIUM PICOSULFATE [Concomitant]
  10. AZULENE SODIUM SULFONATE [Concomitant]

REACTIONS (7)
  - DIZZINESS [None]
  - DYSARTHRIA [None]
  - DYSSTASIA [None]
  - OVERDOSE [None]
  - POSTICTAL STATE [None]
  - SOMNOLENCE [None]
  - THERAPEUTIC AGENT TOXICITY [None]
